FAERS Safety Report 8813734 (Version 3)
Quarter: 2013Q1

REPORT INFORMATION
  Report Type: Report from Study
  Country: US (occurrence: US)
  Receive Date: 20120928
  Receipt Date: 20130102
  Transmission Date: 20140127
  Serious: Yes (Hospitalization, Other)
  Sender: FDA-Public Use
  Company Number: US-ROCHE-1106931

PATIENT
  Age: 73 Year
  Sex: Male
  Weight: 76.27 kg

DRUGS (10)
  1. VEMURAFENIB [Suspect]
     Indication: METASTATIC MALIGNANT MELANOMA
     Route: 048
     Dates: start: 20120411, end: 20121210
  2. VEMURAFENIB [Suspect]
     Route: 048
     Dates: start: 20120430, end: 20120620
  3. VEMURAFENIB [Suspect]
     Route: 048
     Dates: start: 20120430, end: 20120620
  4. VEMURAFENIB [Suspect]
     Route: 048
     Dates: start: 20120620
  5. VEMURAFENIB [Suspect]
     Route: 048
     Dates: start: 20120411, end: 20121210
  6. ZOCOR [Concomitant]
     Indication: HYPERLIPIDAEMIA
     Route: 048
  7. LOTREL [Concomitant]
     Indication: HYPERTENSION
     Route: 048
  8. ASPIRIN [Concomitant]
     Route: 048
  9. SAW PALMETTO [Concomitant]
     Route: 048
  10. CA CARBONATE [Concomitant]
     Route: 048

REACTIONS (13)
  - Squamous cell carcinoma of skin [Not Recovered/Not Resolved]
  - Rash generalised [Recovered/Resolved]
  - Swelling face [Recovered/Resolved]
  - Lip swelling [Recovered/Resolved]
  - Stomatitis [Recovered/Resolved]
  - Lymphoedema [Recovering/Resolving]
  - Cerebral haemorrhage [Not Recovered/Not Resolved]
  - Visual field defect [Not Recovered/Not Resolved]
  - Swelling face [Not Recovered/Not Resolved]
  - Alopecia [Not Recovered/Not Resolved]
  - Photosensitivity reaction [Not Recovered/Not Resolved]
  - Thermal burn [Not Recovered/Not Resolved]
  - Disease progression [Unknown]
